FAERS Safety Report 10598168 (Version 1)
Quarter: 2014Q4

REPORT INFORMATION
  Report Type: Spontaneous
  Country: US (occurrence: US)
  Receive Date: 20141121
  Receipt Date: 20141121
  Transmission Date: 20150529
  Serious: Yes (Other)
  Sender: FDA-Public Use
  Company Number: US-PFIZER INC-2014317904

PATIENT
  Age: 44 Year
  Sex: Female

DRUGS (15)
  1. FLONASE [Concomitant]
     Active Substance: FLUTICASONE PROPIONATE
     Dosage: 1 DF, 2X/DAY (1 PUFFS IH), 2X/DAY)
     Dates: start: 20130915
  2. ROBAXIN [Concomitant]
     Active Substance: METHOCARBAMOL
     Dosage: 500 MG, 3X/DAY (500 MG, (AT EVERY 8 HOURS)
     Route: 048
     Dates: start: 20141013
  3. PROMETHAZINE [Concomitant]
     Active Substance: PROMETHAZINE\PROMETHAZINE HYDROCHLORIDE
     Dosage: 25 MG, DAILY
  4. AMBIEN [Concomitant]
     Active Substance: ZOLPIDEM TARTRATE
     Dosage: 10 MG, AS NEEDED (AT BEDTIME)
     Route: 048
     Dates: start: 20140917
  5. NEURONTIN [Concomitant]
     Active Substance: GABAPENTIN
     Dosage: UNK
  6. GABAPENTIN. [Concomitant]
     Active Substance: GABAPENTIN
     Dosage: 600 MG, 3X/DAY
     Route: 048
     Dates: start: 20130626
  7. CLONAZEPAM. [Concomitant]
     Active Substance: CLONAZEPAM
     Dosage: 1 MG, (AT BEDTIME)
     Route: 048
     Dates: start: 20141031
  8. IBUPROFEN. [Concomitant]
     Active Substance: IBUPROFEN
     Dosage: 800 MG, (AS DIRECTED)
     Route: 048
     Dates: start: 20140917
  9. CYMBALTA [Concomitant]
     Active Substance: DULOXETINE HYDROCHLORIDE
     Dosage: 60 MG, DAILY
     Route: 048
     Dates: start: 20140917
  10. LYRICA [Suspect]
     Active Substance: PREGABALIN
     Dosage: 50 MG, 2X/DAY
     Route: 048
  11. NORCO [Concomitant]
     Active Substance: ACETAMINOPHEN\HYDROCODONE BITARTRATE
     Dosage: 10/355 1 DF EVERY 12 HOURS
     Route: 048
     Dates: start: 20141013
  12. ELAVIL [Concomitant]
     Active Substance: AMITRIPTYLINE HYDROCHLORIDE
     Dosage: 25 MG, DAILY
     Route: 048
     Dates: start: 20140917
  13. OXYCODONE HYDROCHLORIDE. [Concomitant]
     Active Substance: OXYCODONE HYDROCHLORIDE
     Dosage: 15 MG, EVERY 4 HRS
     Route: 048
  14. TIZANIDINE HYDROCHLORIDE. [Concomitant]
     Active Substance: TIZANIDINE HYDROCHLORIDE
     Dosage: 4 MG, 2X/DAY (AT EVERY 12 HOURS)
     Route: 048
  15. BACLOFEN. [Concomitant]
     Active Substance: BACLOFEN
     Dosage: UNK

REACTIONS (17)
  - Musculoskeletal pain [Unknown]
  - Body temperature increased [Unknown]
  - Heart rate increased [Unknown]
  - Pain [Unknown]
  - Paraesthesia [Unknown]
  - Back pain [Unknown]
  - Muscle spasms [Unknown]
  - Fall [Unknown]
  - Abdominal pain [Unknown]
  - Arthropathy [Unknown]
  - Peripheral pulse decreased [Unknown]
  - Splenic infarction [Unknown]
  - Anxiety [Unknown]
  - Depression [Unknown]
  - Respiratory rate increased [Unknown]
  - Myofascial pain syndrome [Unknown]
  - Decreased appetite [Unknown]
